FAERS Safety Report 11535871 (Version 1)
Quarter: 2015Q3

REPORT INFORMATION
  Report Type: Spontaneous
  Country: None (occurrence: None)
  Receive Date: 20150921
  Receipt Date: 20150921
  Transmission Date: 20151125
  Serious: Yes (Disabling, Other)
  Sender: FDA-Public Use
  Company Number: None

PATIENT
  Age: 23 Year
  Sex: Male
  Weight: 101.61 kg

DRUGS (6)
  1. LITHIUM. [Concomitant]
     Active Substance: LITHIUM
  2. QUETIAPINE 300MG [Suspect]
     Active Substance: QUETIAPINE
     Indication: BIPOLAR DISORDER
     Dosage: 2 PILLS
     Route: 048
     Dates: start: 20130104, end: 20150915
  3. QUITIPINE [Concomitant]
  4. ZOPICLONE [Concomitant]
     Active Substance: ZOPICLONE
  5. QUETIAPINE 300MG [Suspect]
     Active Substance: QUETIAPINE
     Indication: ANXIETY
     Dosage: 2 PILLS
     Route: 048
     Dates: start: 20130104, end: 20150915
  6. DIAZEPAM. [Concomitant]
     Active Substance: DIAZEPAM

REACTIONS (6)
  - Restlessness [None]
  - Panic reaction [None]
  - Anxiety [None]
  - Agitation [None]
  - Paranoia [None]
  - Hallucination, auditory [None]

NARRATIVE: CASE EVENT DATE: 20150819
